FAERS Safety Report 18952683 (Version 3)
Quarter: 2021Q2

REPORT INFORMATION
  Report Type: Spontaneous
  Country: US (occurrence: US)
  Receive Date: 20210301
  Receipt Date: 20210412
  Transmission Date: 20210717
  Serious: Yes (Hospitalization)
  Sender: FDA-Public Use
  Company Number: US-BIOCODEX SA-2021000074

PATIENT

DRUGS (14)
  1. METFORMIN [Concomitant]
     Active Substance: METFORMIN HYDROCHLORIDE
  2. VIMPAT [Concomitant]
     Active Substance: LACOSAMIDE
  3. MELATONIN [Concomitant]
     Active Substance: MELATONIN
  4. LORATADINE. [Concomitant]
     Active Substance: LORATADINE
  5. DIACOMIT [Suspect]
     Active Substance: STIRIPENTOL
     Indication: IDIOPATHIC GENERALISED EPILEPSY
     Dosage: 250 MG THREE TIMES DAILY
     Route: 065
     Dates: start: 20200527, end: 20210315
  6. EPIDIOLEX [Concomitant]
     Active Substance: CANNABIDIOL
  7. BRIVIACT [Concomitant]
     Active Substance: BRIVARACETAM
  8. CONCERTA [Concomitant]
     Active Substance: METHYLPHENIDATE HYDROCHLORIDE
  9. VITAMIN D                          /00107901/ [Concomitant]
     Active Substance: ERGOCALCIFEROL
  10. DIASTAT                            /00017001/ [Concomitant]
  11. PROPRANOLOL [Concomitant]
     Active Substance: PROPRANOLOL HYDROCHLORIDE
     Dosage: UNK
  12. THORAZINE [Concomitant]
     Active Substance: CHLORPROMAZINE
  13. BENZTROPINE                        /00012901/ [Concomitant]
     Active Substance: BENZTROPINE
  14. OLANZAPINE. [Concomitant]
     Active Substance: OLANZAPINE

REACTIONS (3)
  - Seizure [Unknown]
  - Product use in unapproved indication [Unknown]
  - Behaviour disorder [Unknown]
